FAERS Safety Report 6420292-7 (Version None)
Quarter: 2009Q4

REPORT INFORMATION
  Report Type: 
  Country: None (occurrence: None)
  Receive Date: 20091029
  Receipt Date: 20091020
  Transmission Date: 20100525
  Serious: Yes (Hospitalization, Other)
  Sender: FDA-Public Use
  Company Number: US-ABBOTT-09P-163-0603861-00

PATIENT
  Sex: Female
  Weight: 55.388 kg

DRUGS (3)
  1. HUMIRA [Suspect]
     Indication: CROHN'S DISEASE
     Route: 058
     Dates: start: 20071016, end: 20090101
  2. HUMIRA [Suspect]
     Dosage: PRE-FILLED SYRINGE
     Route: 058
     Dates: start: 20091020
  3. CLONOPIN [Concomitant]
     Indication: FEELING OF RELAXATION

REACTIONS (7)
  - ABSCESS [None]
  - ADMINISTRATION SITE PAIN [None]
  - CROHN'S DISEASE [None]
  - FATIGUE [None]
  - ILL-DEFINED DISORDER [None]
  - LARGE INTESTINE PERFORATION [None]
  - NAUSEA [None]
